FAERS Safety Report 18840965 (Version 1)
Quarter: 2021Q1

REPORT INFORMATION
  Report Type: Spontaneous
  Country: CN (occurrence: CN)
  Receive Date: 20210203
  Receipt Date: 20210203
  Transmission Date: 20210419
  Serious: Yes (Hospitalization)
  Sender: FDA-Public Use
  Company Number: CN-GLAXOSMITHKLINE-CN2021APC019851

PATIENT
  Age: 41 Year
  Sex: Male
  Weight: 71 kg

DRUGS (1)
  1. BACTROBAN [Suspect]
     Active Substance: MUPIROCIN\MUPIROCIN CALCIUM
     Indication: FOLLICULITIS
     Dosage: 1 G, BID
     Route: 061
     Dates: start: 20201225, end: 20201229

REACTIONS (11)
  - Application site dryness [Unknown]
  - Pigmentation disorder [Unknown]
  - Application site erythema [Unknown]
  - Skin fissures [Unknown]
  - Scab [Unknown]
  - Application site pain [Unknown]
  - Application site exfoliation [Recovering/Resolving]
  - Condition aggravated [Unknown]
  - Dermatitis contact [Recovering/Resolving]
  - Swelling [Unknown]
  - Rash maculo-papular [Unknown]

NARRATIVE: CASE EVENT DATE: 20201225
